FAERS Safety Report 25413218 (Version 1)
Quarter: 2025Q2

REPORT INFORMATION
  Report Type: Spontaneous
  Country: PY (occurrence: PY)
  Receive Date: 20250609
  Receipt Date: 20250609
  Transmission Date: 20250716
  Serious: Yes (Death)
  Sender: NOVARTIS
  Company Number: PY-002147023-NVSC2025PY091443

PATIENT
  Sex: Female

DRUGS (1)
  1. GLIVEC [Suspect]
     Active Substance: IMATINIB MESYLATE
     Indication: Chronic myeloid leukaemia
     Dosage: 400 MG, Q24H
     Route: 048

REACTIONS (5)
  - Pneumonia [Fatal]
  - Cerebrovascular accident [Fatal]
  - Colon cancer [Fatal]
  - Nosocomial infection [Fatal]
  - Chronic myeloid leukaemia [Fatal]
